FAERS Safety Report 18495060 (Version 1)
Quarter: 2020Q4

REPORT INFORMATION
  Report Type: Spontaneous
  Country: US (occurrence: US)
  Receive Date: 20201112
  Receipt Date: 20201112
  Transmission Date: 20210114
  Serious: Yes (Other)
  Sender: FDA-Public Use
  Company Number: US-GLAXOSMITHKLINE-US2020221403

PATIENT
  Sex: Female

DRUGS (1)
  1. ANORO ELLIPTA [Suspect]
     Active Substance: UMECLIDINIUM BROMIDE\VILANTEROL TRIFENATATE
     Indication: CHRONIC OBSTRUCTIVE PULMONARY DISEASE
     Dosage: UNK (62.5/25)
     Route: 055
     Dates: start: 20200926, end: 20201010

REACTIONS (7)
  - Hallucination, visual [Unknown]
  - Insomnia [Unknown]
  - Dairy intolerance [Unknown]
  - Product dose omission issue [Unknown]
  - Drug ineffective [Unknown]
  - Tinnitus [Unknown]
  - Dyspnoea [Unknown]
